FAERS Safety Report 19465698 (Version 2)
Quarter: 2021Q2

REPORT INFORMATION
  Report Type: Spontaneous
  Country: AU (occurrence: AU)
  Receive Date: 20210625
  Receipt Date: 20210625
  Transmission Date: 20210717
  Serious: Yes (Hospitalization)
  Sender: FDA-Public Use
  Company Number: AU-TELIGENT, INC-20210600059

PATIENT

DRUGS (1)
  1. CIPROFLOXACIN UNSPECIFIED [Suspect]
     Active Substance: CIPROFLOXACIN
     Indication: PNEUMONIA
     Dosage: 500 MILLIGRAM, DAILY

REACTIONS (3)
  - Deep vein thrombosis [Unknown]
  - Tendon rupture [Unknown]
  - Haematoma [Unknown]
